FAERS Safety Report 15242777 (Version 2)
Quarter: 2018Q3

REPORT INFORMATION
  Report Type: Report from Study
  Country: None (occurrence: NL)
  Receive Date: 20180806
  Receipt Date: 20180907
  Transmission Date: 20181010
  Serious: Yes (Hospitalization)
  Sender: FDA-Public Use
  Company Number: NL-ABBVIE-18S-114-2441546-00

PATIENT
  Sex: Male

DRUGS (2)
  1. DUODOPA [Suspect]
     Active Substance: CARBIDOPA\LEVODOPA
     Route: 050
  2. DUODOPA [Suspect]
     Active Substance: CARBIDOPA\LEVODOPA
     Indication: PARKINSON^S DISEASE
     Dosage: MD: 5.0, CD: 2.5, ED: 1.5, CND: 1.5, END: 1.5
     Route: 050
     Dates: start: 20161205

REACTIONS (1)
  - Palpitations [Not Recovered/Not Resolved]

NARRATIVE: CASE EVENT DATE: 2018
